FAERS Safety Report 9532210 (Version 1)
Quarter: 2013Q3

REPORT INFORMATION
  Report Type: Spontaneous
  Country: DE (occurrence: DE)
  Receive Date: 20130918
  Receipt Date: 20130918
  Transmission Date: 20140515
  Serious: Yes (Hospitalization)
  Sender: FDA-Public Use
  Company Number: DE-ELI_LILLY_AND_COMPANY-DE201309005534

PATIENT
  Age: 75 Year
  Sex: Female

DRUGS (8)
  1. RALOXIFENE HYDROCHLORIDE [Suspect]
     Indication: OSTEOPOROSIS
     Dosage: 60 MG, QD
     Route: 048
     Dates: start: 20130615, end: 2013
  2. CALCILAC KT [Concomitant]
     Indication: OSTEOPOROSIS
     Route: 048
  3. DEKRISTOL [Concomitant]
     Indication: OSTEOPOROSIS
     Dosage: 20000 IU, MONTHLY (1/M)
     Route: 048
  4. IBU [Concomitant]
     Indication: PAIN
     Dosage: UNK
     Route: 048
  5. SYMBICORT [Concomitant]
     Indication: CHRONIC OBSTRUCTIVE PULMONARY DISEASE
  6. METFORMIN [Concomitant]
     Indication: DIABETES MELLITUS
     Route: 048
  7. ATACAND [Concomitant]
     Indication: HYPERTENSION
     Dosage: .5 DF, QD
     Route: 048
  8. SIMVASTATIN [Concomitant]
     Indication: PRODUCT USED FOR UNKNOWN INDICATION
     Dosage: 20 MG, QD
     Route: 048

REACTIONS (4)
  - Hyponatraemia [Unknown]
  - Weight decreased [Unknown]
  - Vomiting [Unknown]
  - Nausea [Unknown]
